FAERS Safety Report 7797556-8 (Version None)
Quarter: 2011Q3

REPORT INFORMATION
  Report Type: 
  Country: None (occurrence: None)
  Receive Date: 20110927
  Receipt Date: 20110922
  Transmission Date: 20111222
  Serious: Yes (Hospitalization)
  Sender: FDA-Public Use
  Company Number: 2011029747

PATIENT
  Age: 85 Year
  Sex: Female

DRUGS (7)
  1. LEXAPRO [Concomitant]
  2. KARDEGIC /00002703/ (ACETYLSALICYLATE LYSINE) [Concomitant]
  3. LEXOMIL (BROMAZEPAM) [Concomitant]
  4. CHLORAMINOPHENE (CHLORAMBUCIL) [Concomitant]
  5. LEVOTHYROXINE SODIUM [Concomitant]
  6. EPREX [Concomitant]
  7. SANDOGLOBULIN [Suspect]
     Dosage: 12 G QD
     Route: 042
     Dates: start: 20110609, end: 20110609

REACTIONS (4)
  - SEPTIC SHOCK [None]
  - INFUSION RELATED REACTION [None]
  - STAPHYLOCOCCAL SEPSIS [None]
  - HYPERTHERMIA [None]
